FAERS Safety Report 6149179-4 (Version None)
Quarter: 2009Q2

REPORT INFORMATION
  Report Type: 
  Country: None (occurrence: None)
  Receive Date: 20090407
  Receipt Date: 20090323
  Transmission Date: 20091009
  Serious: Yes (Hospitalization, Other)
  Sender: FDA-Public Use
  Company Number: 237841J08USA

PATIENT
  Age: 55 Year
  Sex: Female
  Weight: 59 kg

DRUGS (9)
  1. REBIF [Suspect]
     Indication: MULTIPLE SCLEROSIS
     Dosage: 44 MCG, 3 IN 1 WEEKS, SUBCUTANEOUS
     Route: 058
     Dates: start: 20080123
  2. METOPROLOL (METOPROLOL /00376901/) [Concomitant]
  3. XANAX [Concomitant]
  4. CLONAZEPAM [Concomitant]
  5. LYRICA [Concomitant]
  6. CYMBALTA [Concomitant]
  7. PREVACID [Concomitant]
  8. ESTROGEN (ESTROGENS) [Concomitant]
  9. UNSPECIFIED MUSCLE RELAXANT (MUSCLE RELAXANTS) [Concomitant]

REACTIONS (4)
  - BLOOD PRESSURE DIASTOLIC DECREASED [None]
  - BRAIN NEOPLASM BENIGN [None]
  - MYOCARDIAL INFARCTION [None]
  - REFUSAL OF TREATMENT BY PATIENT [None]
